FAERS Safety Report 9030304 (Version 1)
Quarter: 2013Q1

REPORT INFORMATION
  Report Type: Spontaneous
  Country: DE (occurrence: DE)
  Receive Date: 20130122
  Receipt Date: 20130122
  Transmission Date: 20140127
  Serious: Yes (Hospitalization)
  Sender: FDA-Public Use
  Company Number: CHPA2013DE001338

PATIENT
  Age: 55 Year
  Sex: Female

DRUGS (4)
  1. DIMETINDENE MALEATE [Suspect]
     Indication: PRURITUS
     Route: 048
     Dates: start: 20110321
  2. DOXYCYCLINE [Suspect]
     Indication: DERMATITIS ACNEIFORM
     Dosage: 100 MG, QD
     Route: 048
     Dates: start: 20110321
  3. TARCEVA [Suspect]
     Indication: NON-SMALL CELL LUNG CANCER
     Dosage: 150 MG, DAILY
     Route: 048
     Dates: start: 20110314
  4. TRIAMCINOLONE [Concomitant]
     Indication: PRURITUS
     Dosage: UNK, UNK

REACTIONS (1)
  - Gastritis [Recovered/Resolved]
